FAERS Safety Report 11390806 (Version 1)
Quarter: 2015Q3

REPORT INFORMATION
  Report Type: Spontaneous
  Country: US (occurrence: None)
  Receive Date: 20150814
  Receipt Date: 20150814
  Transmission Date: 20151125
  Serious: No
  Sender: FDA-Public Use
  Company Number: None

PATIENT
  Age: 78 Year
  Sex: Female
  Weight: 115 kg

DRUGS (10)
  1. ELIQUIS [Suspect]
     Active Substance: APIXABAN
     Indication: DEEP VEIN THROMBOSIS
     Route: 048
     Dates: start: 20150618, end: 20150620
  2. ASPIRIN. [Concomitant]
     Active Substance: ASPIRIN
  3. ANGIOMAX [Concomitant]
     Active Substance: BIVALIRUDIN
  4. EFFIENT [Concomitant]
     Active Substance: PRASUGREL HYDROCHLORIDE
  5. ASA EC [Concomitant]
  6. ELIQUIS [Suspect]
     Active Substance: APIXABAN
     Indication: ATRIAL FIBRILLATION
     Route: 048
     Dates: start: 20150618, end: 20150620
  7. FENTANYL. [Concomitant]
     Active Substance: FENTANYL
  8. NITROGLYCERIN. [Concomitant]
     Active Substance: NITROGLYCERIN
  9. VERSED [Concomitant]
     Active Substance: MIDAZOLAM HYDROCHLORIDE
  10. APIXABAN [Concomitant]
     Active Substance: APIXABAN

REACTIONS (1)
  - Lower gastrointestinal haemorrhage [None]

NARRATIVE: CASE EVENT DATE: 20150621
